FAERS Safety Report 11286284 (Version 2)
Quarter: 2015Q3

REPORT INFORMATION
  Report Type: Spontaneous
  Country: US (occurrence: None)
  Receive Date: 20150717
  Receipt Date: 20150730
  Transmission Date: 20151125
  Serious: Yes (Death, Hospitalization, Other)
  Sender: FDA-Public Use
  Company Number: ADR-2015-01330

PATIENT
  Age: 61 Year
  Sex: Female

DRUGS (2)
  1. FENTANYL. [Suspect]
     Active Substance: FENTANYL
     Indication: PAIN
     Dosage: 876.4/DAY
  2. COMPOUNDED BACLOFEN INTRATHECAL [Suspect]
     Active Substance: BACLOFEN
     Indication: PAIN
     Dosage: 204.16/DAY

REACTIONS (5)
  - Device power source issue [None]
  - Decubitus ulcer [None]
  - Unresponsive to stimuli [None]
  - Infected skin ulcer [None]
  - Cardio-respiratory arrest [None]

NARRATIVE: CASE EVENT DATE: 20150709
